FAERS Safety Report 20685245 (Version 1)
Quarter: 2022Q2

REPORT INFORMATION
  Report Type: Spontaneous
  Country: AU (occurrence: AU)
  Receive Date: 20220407
  Receipt Date: 20220407
  Transmission Date: 20220721
  Serious: Yes (Hospitalization)
  Sender: FDA-Public Use
  Company Number: AU-MYLANLABS-2022M1025671

PATIENT
  Age: 31 Year
  Sex: Male

DRUGS (10)
  1. METOCLOPRAMIDE [Suspect]
     Active Substance: METOCLOPRAMIDE
     Indication: Vomiting
     Dosage: 10 MILLIGRAM
     Route: 048
  2. METOCLOPRAMIDE [Suspect]
     Active Substance: METOCLOPRAMIDE
     Indication: Substance abuse
  3. ACETAMINOPHEN [Suspect]
     Active Substance: ACETAMINOPHEN
     Indication: Substance abuse
     Dosage: 1 GRAM
     Route: 048
  4. MIDAZOLAM [Suspect]
     Active Substance: MIDAZOLAM
     Indication: Tachycardia
     Dosage: 5 MILLIGRAM
     Route: 042
  5. DOBUTAMINE [Suspect]
     Active Substance: DOBUTAMINE HYDROCHLORIDE
     Indication: Cardiogenic shock
     Dosage: UNK (INFUSION)
  6. MORPHINE [Suspect]
     Active Substance: MORPHINE
     Indication: Headache
     Dosage: 15 MILLIGRAM
     Route: 042
  7. MORPHINE [Suspect]
     Active Substance: MORPHINE
     Indication: Substance abuse
  8. SODIUM CHLORIDE [Suspect]
     Active Substance: SODIUM CHLORIDE
     Indication: Substance abuse
     Dosage: 1 LITER
     Route: 042
  9. BENZTROPINE [Suspect]
     Active Substance: BENZTROPINE
     Indication: Tachycardia
     Dosage: 1 MILLIGRAM
     Route: 042
  10. ESCITALOPRAM [Concomitant]
     Active Substance: ESCITALOPRAM OXALATE
     Indication: Depression
     Dosage: 10 MILLIGRAM, QD
     Route: 065

REACTIONS (3)
  - Stress cardiomyopathy [Recovered/Resolved]
  - Dystonia [Recovered/Resolved]
  - Condition aggravated [Recovered/Resolved]
